FAERS Safety Report 4632249-7 (Version None)
Quarter: 2005Q2

REPORT INFORMATION
  Report Type: 
  Country: None (occurrence: None)
  Receive Date: 20050411
  Receipt Date: 20050309
  Transmission Date: 20051028
  Serious: Yes (Hospitalization)
  Sender: FDA-Public Use
  Company Number: JP-ROCHE-398454

PATIENT
  Age: 65 Year
  Sex: Male

DRUGS (1)
  1. PEGASYS [Suspect]
     Route: 058
     Dates: start: 20040308, end: 20041101

REACTIONS (6)
  - CARDIAC FAILURE [None]
  - DYSPNOEA EXERTIONAL [None]
  - MYALGIA [None]
  - OEDEMA PERIPHERAL [None]
  - OLIGURIA [None]
  - PERICARDIAL EFFUSION [None]
